FAERS Safety Report 5802288-9 (Version None)
Quarter: 2008Q3

REPORT INFORMATION
  Report Type: 
  Country: None (occurrence: None)
  Receive Date: 20080707
  Receipt Date: 20080623
  Transmission Date: 20090109
  Serious: Yes (Death, Life-Threatening)
  Sender: FDA-Public Use
  Company Number: CH-ROCHE-566413

PATIENT
  Sex: Female

DRUGS (7)
  1. CAPECITABINE [Suspect]
     Route: 048
     Dates: start: 20080503, end: 20080521
  2. OXALIPLATIN [Suspect]
     Route: 042
     Dates: start: 20080503, end: 20080521
  3. GEMCITABINE [Suspect]
     Route: 042
     Dates: start: 20080503, end: 20080521
  4. MORPHINE [Concomitant]
     Route: 048
     Dates: start: 20080423, end: 20080521
  5. INSULIN [Concomitant]
     Dosage: UNIT= IE
     Route: 058
     Dates: start: 20010101, end: 20080521
  6. CANDESARTAN [Concomitant]
     Route: 048
     Dates: start: 20010101, end: 20080521
  7. HYDROCHLOROTHIAZIDE [Concomitant]
     Route: 048
     Dates: start: 20010101, end: 20080521

REACTIONS (2)
  - CARDIAC ARREST [None]
  - ILEUS PARALYTIC [None]
